FAERS Safety Report 10290055 (Version 1)
Quarter: 2014Q3

REPORT INFORMATION
  Report Type: Report from Study
  Country: TN (occurrence: TN)
  Receive Date: 20140710
  Receipt Date: 20140710
  Transmission Date: 20150326
  Serious: Yes (Death)
  Sender: FDA-Public Use
  Company Number: TN-SA-2014SA087448

PATIENT
  Age: 68 Year
  Sex: Female

DRUGS (9)
  1. LASILIX [Concomitant]
     Active Substance: FUROSEMIDE
     Route: 048
  2. KALEORID [Concomitant]
     Active Substance: POTASSIUM CHLORIDE
     Route: 048
  3. FAMODINE [Concomitant]
     Route: 048
  4. ALDACTONE [Concomitant]
     Active Substance: SPIRONOLACTONE
     Route: 048
  5. CINCOR [Concomitant]
     Route: 048
  6. ASPEGIC [Concomitant]
     Active Substance: ASPIRIN DL-LYSINE
     Route: 048
  7. CRESTOR [Concomitant]
     Active Substance: ROSUVASTATIN CALCIUM
     Route: 048
  8. FUMAFER [Concomitant]
     Active Substance: FERROUS FUMARATE
     Route: 048
  9. PLAVIX [Suspect]
     Active Substance: CLOPIDOGREL BISULFATE
     Indication: MYOCARDIAL INFARCTION
     Dosage: DOSE: 75 (UNITS UNSPECIFIED)
     Route: 048
     Dates: start: 20140116, end: 20140521

REACTIONS (1)
  - Cardiac arrest [Fatal]

NARRATIVE: CASE EVENT DATE: 20140521
